FAERS Safety Report 5491134-1 (Version None)
Quarter: 2007Q4

REPORT INFORMATION
  Report Type: 
  Country: None (occurrence: None)
  Receive Date: 20071019
  Receipt Date: 20071009
  Transmission Date: 20080405
  Serious: Yes (Other)
  Sender: FDA-Public Use
  Company Number: US-PFIZER INC-2007084234

PATIENT
  Sex: Male
  Weight: 72.6 kg

DRUGS (3)
  1. GEODON [Suspect]
     Indication: DEPRESSION
     Dates: start: 20070401, end: 20071009
  2. ATIVAN [Concomitant]
  3. ANTIHYPERTENSIVES [Concomitant]

REACTIONS (2)
  - SUICIDAL IDEATION [None]
  - TARDIVE DYSKINESIA [None]
